FAERS Safety Report 6237534-3 (Version None)
Quarter: 2009Q2

REPORT INFORMATION
  Report Type: 
  Country: None (occurrence: None)
  Receive Date: 20090619
  Receipt Date: 20090615
  Transmission Date: 20091009
  Serious: Yes (Death)
  Sender: FDA-Public Use
  Company Number: RS-B.I. PHARMACEUTICALS,INC./RIDGEFIELD-2009-AP-00142AP

PATIENT
  Age: 60 Year
  Sex: Female

DRUGS (7)
  1. MOVALIS [Suspect]
     Indication: RHEUMATOID ARTHRITIS
     Dosage: 1.5ML
     Route: 030
     Dates: start: 20080815, end: 20080815
  2. PRILINDA [Concomitant]
     Indication: HYPERTENSION
     Dates: start: 20080501
  3. BISOPROLOL FUMARATE [Concomitant]
     Indication: HYPERTENSION
     Dates: start: 20080501
  4. DIAZEPAM [Concomitant]
     Dates: start: 20080501
  5. LORISTA [Concomitant]
     Dates: start: 20080601
  6. KATOPIL [Concomitant]
     Indication: HYPERTENSION
     Dates: start: 20080815
  7. BENSEDIN [Concomitant]
     Indication: HYPERTENSION
     Dates: start: 20080815

REACTIONS (1)
  - DEATH [None]
